FAERS Safety Report 25989225 (Version 1)
Quarter: 2025Q4

REPORT INFORMATION
  Report Type: Spontaneous
  Country: CA (occurrence: CA)
  Receive Date: 20251103
  Receipt Date: 20251103
  Transmission Date: 20260117
  Serious: Yes (Death, Hospitalization)
  Sender: NOVARTIS
  Company Number: CA-002147023-NVSC2025CA167138

PATIENT
  Age: 58 Year
  Sex: Male

DRUGS (3)
  1. CYCLOSPORINE [Suspect]
     Active Substance: CYCLOSPORINE
     Indication: Immunosuppressant drug therapy
     Dosage: 6 MG/KG, QD FOR THE FIRST 6 MONTHS POSTTRANSPLANT
     Route: 065
  2. CYCLOSPORINE [Suspect]
     Active Substance: CYCLOSPORINE
     Dosage: 4.5 MG/KG, QD
     Route: 065
  3. CYCLOSPORINE [Suspect]
     Active Substance: CYCLOSPORINE
     Dosage: 3 MG/KG, QD
     Route: 065

REACTIONS (4)
  - Multiple organ dysfunction syndrome [Fatal]
  - Nephropathy toxic [Unknown]
  - Renal failure [Unknown]
  - Pneumonia [Unknown]
